FAERS Safety Report 9675354 (Version 2)
Quarter: 2013Q4

REPORT INFORMATION
  Report Type: Spontaneous
  Country: US (occurrence: US)
  Receive Date: 20131107
  Receipt Date: 20131108
  Transmission Date: 20140711
  Serious: No
  Sender: FDA-Public Use
  Company Number: US-PFIZER INC-2013316723

PATIENT
  Age: 27 Year
  Sex: Female
  Weight: 70.3 kg

DRUGS (4)
  1. LYRICA [Suspect]
     Indication: NEUROPATHY PERIPHERAL
     Dosage: 50 MG, 3X/DAY
     Route: 048
     Dates: start: 201212
  2. LYRICA [Suspect]
     Indication: COMPLEX REGIONAL PAIN SYNDROME
     Dosage: 300 MG, UNK
  3. NORCO [Suspect]
     Indication: PAIN
     Dosage: HYDROCODONE BITARTRATE(10MG) AND ACETAMINOPHEN(325MG), 3X/DAY
  4. NORCO [Suspect]
     Indication: COMPLEX REGIONAL PAIN SYNDROME

REACTIONS (3)
  - Off label use [Unknown]
  - Pain [Unknown]
  - Drug ineffective for unapproved indication [Unknown]
